FAERS Safety Report 8141228-7 (Version None)
Quarter: 2012Q1

REPORT INFORMATION
  Report Type: 
  Country: None (occurrence: None)
  Receive Date: 20120216
  Receipt Date: 20120213
  Transmission Date: 20120608
  Serious: Yes (Hospitalization)
  Sender: FDA-Public Use
  Company Number: JP-ROCHE-787426

PATIENT
  Sex: Female
  Weight: 48 kg

DRUGS (6)
  1. PACLITAXEL [Concomitant]
     Indication: LUNG ADENOCARCINOMA METASTATIC
     Route: 041
     Dates: start: 20101216, end: 20110101
  2. AMLODIPINE [Concomitant]
     Dosage: NOTE: DOSAGE IS UNCERTAIN.
     Route: 048
  3. CARBOPLATIN [Concomitant]
     Indication: LUNG ADENOCARCINOMA METASTATIC
     Route: 041
     Dates: start: 20101216, end: 20110101
  4. DEPAS [Concomitant]
     Dosage: FORM: PERORAL AGENT, NOTE: DOSAGE IS UNCERTAIN.
     Route: 048
  5. AVASTIN [Suspect]
     Indication: LUNG ADENOCARCINOMA METASTATIC
     Dosage: DRUG WITHDRAWN
     Route: 041
     Dates: start: 20101216, end: 20110621
  6. DIOVAN [Concomitant]
     Dosage: NOTE: DOSAGE IS UNCERTAIN.
     Route: 048

REACTIONS (1)
  - RHABDOMYOLYSIS [None]
